FAERS Safety Report 15514857 (Version 1)
Quarter: 2018Q4

REPORT INFORMATION
  Report Type: Spontaneous
  Country: US (occurrence: US)
  Receive Date: 20181017
  Receipt Date: 20181017
  Transmission Date: 20190205
  Serious: No
  Sender: FDA-Public Use
  Company Number: US-ROMARKLABS-2018-US-000062

PATIENT
  Age: 56 Year
  Sex: Female

DRUGS (2)
  1. CHARCOAL CAPSULES [Concomitant]
     Indication: PRODUCT USED FOR UNKNOWN INDICATION
     Route: 048
  2. ALINIA [Suspect]
     Active Substance: NITAZOXANIDE
     Indication: CLOSTRIDIUM DIFFICILE INFECTION
     Dosage: 1 TABLET TWICE DAILY
     Route: 048
     Dates: start: 20171215

REACTIONS (3)
  - Flatulence [Unknown]
  - Arthralgia [Unknown]
  - Abdominal pain [Unknown]

NARRATIVE: CASE EVENT DATE: 201712
